FAERS Safety Report 11492459 (Version 1)
Quarter: 2015Q3

REPORT INFORMATION
  Report Type: Report from Study
  Country: US (occurrence: US)
  Receive Date: 20150910
  Receipt Date: 20150910
  Transmission Date: 20151125
  Serious: Yes (Hospitalization)
  Sender: FDA-Public Use
  Company Number: US-ACTELION-A-US2015-123572

PATIENT
  Age: 21 Year
  Sex: Female

DRUGS (10)
  1. PREDNISONE. [Concomitant]
     Active Substance: PREDNISONE
  2. MACITENTAN [Suspect]
     Active Substance: MACITENTAN
     Indication: PULMONARY ARTERIAL HYPERTENSION
     Dosage: 10 MG, QD
     Route: 048
     Dates: start: 20150110
  3. ADCIRCA [Concomitant]
     Active Substance: TADALAFIL
  4. VITAMIN B [Concomitant]
     Active Substance: VITAMIN B
  5. LISINOPRIL. [Concomitant]
     Active Substance: LISINOPRIL
  6. NORVASC [Concomitant]
     Active Substance: AMLODIPINE BESYLATE
  7. PLAQUENIL [Concomitant]
     Active Substance: HYDROXYCHLOROQUINE SULFATE
  8. TACROLIMUS. [Concomitant]
     Active Substance: TACROLIMUS
  9. FISH OIL [Concomitant]
     Active Substance: FISH OIL
  10. MYCOPHENOLATE [Concomitant]
     Active Substance: MYCOPHENOLIC ACID

REACTIONS (3)
  - Nausea [Unknown]
  - Vertigo [Unknown]
  - Vomiting [Unknown]

NARRATIVE: CASE EVENT DATE: 20150812
